FAERS Safety Report 9527522 (Version 1)
Quarter: 2013Q1

REPORT INFORMATION
  Report Type: Spontaneous
  Country: US (occurrence: None)
  Receive Date: 20130314
  Receipt Date: 20130314
  Transmission Date: 20140127
  Serious: No
  Sender: FDA-Public Use
  Company Number: 1209USA040810

PATIENT
  Age: 63 Year
  Sex: Female

DRUGS (3)
  1. VICTRELIS (BOCEPREVIR) CAPSULE [Suspect]
     Indication: HEPATITIS C
     Route: 048
     Dates: start: 20121009
  2. RIBAVIRIN (RIBAVIRIN) CAPSULE [Suspect]
     Indication: HEPATITIS C
     Route: 048
     Dates: start: 20120910
  3. PEGASYS (PEGINTERFERON ALFA-2A) [Suspect]
     Indication: HEPATITIS C
     Dates: start: 20120910

REACTIONS (16)
  - Somnolence [None]
  - Abdominal pain [None]
  - Feeling cold [None]
  - Nocturia [None]
  - Cough [None]
  - Headache [None]
  - Hyperphagia [None]
  - Dyspnoea [None]
  - Psoriasis [None]
  - Haemoglobin decreased [None]
  - Fatigue [None]
  - Insomnia [None]
  - Insomnia [None]
  - Initial insomnia [None]
  - Red blood cell count decreased [None]
  - Asthenia [None]
